FAERS Safety Report 9378520 (Version 2)
Quarter: 2013Q3

REPORT INFORMATION
  Report Type: Report from Study
  Country: US (occurrence: US)
  Receive Date: 20130702
  Receipt Date: 20130723
  Transmission Date: 20140515
  Serious: Yes (Hospitalization)
  Sender: FDA-Public Use
  Company Number: US-ROCHE-1243220

PATIENT
  Age: 62 Year
  Sex: Male

DRUGS (5)
  1. VEMURAFENIB [Suspect]
     Indication: MALIGNANT MELANOMA
     Route: 048
     Dates: start: 20130322, end: 20130612
  2. MIRTAZAPINE [Concomitant]
     Route: 065
     Dates: end: 20130619
  3. VENLAFAXINE HYDROCHLORIDE [Concomitant]
     Route: 065
     Dates: end: 20130619
  4. WARFARIN SODIUM [Concomitant]
     Route: 065
     Dates: end: 20130619
  5. PROMETHAZINE [Concomitant]
     Route: 065
     Dates: start: 2003, end: 20130619

REACTIONS (2)
  - Muscular weakness [Recovering/Resolving]
  - Mental status changes [Recovering/Resolving]
